FAERS Safety Report 6779867-8 (Version None)
Quarter: 2010Q2

REPORT INFORMATION
  Report Type: 
  Country: None (occurrence: None)
  Receive Date: 20100618
  Receipt Date: 20100607
  Transmission Date: 20101027
  Serious: Yes (Other)
  Sender: FDA-Public Use
  Company Number: PHHY2010US36498

PATIENT
  Sex: Male

DRUGS (2)
  1. EXTAVIA [Suspect]
     Indication: MULTIPLE SCLEROSIS
     Dosage: 0.25 MG, QOD
     Route: 058
     Dates: start: 20100423
  2. GAMMAGARD [Concomitant]

REACTIONS (4)
  - BALANCE DISORDER [None]
  - DEPRESSION [None]
  - EYE DISORDER [None]
  - MULTIPLE SCLEROSIS RELAPSE [None]
